FAERS Safety Report 8990249 (Version 2)
Quarter: 2013Q1

REPORT INFORMATION
  Report Type: Spontaneous
  Country: PT (occurrence: PT)
  Receive Date: 20121228
  Receipt Date: 20130325
  Transmission Date: 20140127
  Serious: Yes (Death)
  Sender: FDA-Public Use
  Company Number: PT-COVIDIEN/TYCO HEALTHCARE/MALLINCKRODT-T201204422

PATIENT
  Sex: 0

DRUGS (1)
  1. EXALGO EXTENDED RELEASE [Suspect]
     Indication: PAIN MANAGEMENT
     Dosage: UNK

REACTIONS (1)
  - Death [Fatal]
